FAERS Safety Report 8502856-X (Version None)
Quarter: 2012Q3

REPORT INFORMATION
  Report Type: 
  Country: None (occurrence: None)
  Receive Date: 20120702
  Receipt Date: 20120627
  Transmission Date: 20120928
  Serious: Yes (Other)
  Sender: FDA-Public Use
  Company Number: GER/UKI/12/0024813

PATIENT
  Age: 64 Year
  Sex: Female

DRUGS (3)
  1. BENDROFLUMETHIAZIDE (BENDROFLUMETHIAZIDE) [Concomitant]
  2. AMLODIPINE [Suspect]
     Indication: BLOOD PRESSURE INCREASED
     Dosage: 5 MG,  1 IN 1 D, ORAL
     Route: 048
     Dates: start: 20120301, end: 20120524
  3. HRT (ALL OTHER THERAPEUTIC PRODUCTS) [Concomitant]

REACTIONS (3)
  - JOINT SWELLING [None]
  - RASH PRURITIC [None]
  - RASH ERYTHEMATOUS [None]
